FAERS Safety Report 23222064 (Version 1)
Quarter: 2023Q4

REPORT INFORMATION
  Report Type: Report from Study
  Country: US (occurrence: US)
  Receive Date: 20231123
  Receipt Date: 20231123
  Transmission Date: 20240110
  Serious: Yes (Other)
  Sender: FDA-Public Use
  Company Number: US-ARGENX-2022-ARGX-US001020

PATIENT

DRUGS (3)
  1. VYVGART [Suspect]
     Active Substance: EFGARTIGIMOD ALFA-FCAB
     Indication: Myasthenia gravis
     Dosage: UNK
     Route: 042
  2. INJECTAFER [Concomitant]
     Active Substance: FERRIC CARBOXYMALTOSE
     Indication: Product used for unknown indication
  3. IVIGLOB EX [Concomitant]
     Active Substance: HUMAN IMMUNOGLOBULIN G
     Indication: Disease progression

REACTIONS (10)
  - Sjogren^s syndrome [Unknown]
  - Rheumatoid arthritis [Unknown]
  - COVID-19 [Recovering/Resolving]
  - Urticaria [Unknown]
  - Surgery [Not Recovered/Not Resolved]
  - Endodontic procedure [Recovered/Resolved]
  - Cough [Not Recovered/Not Resolved]
  - Myasthenia gravis [Not Recovered/Not Resolved]
  - Pain in extremity [Unknown]
  - Pernicious anaemia [Unknown]

NARRATIVE: CASE EVENT DATE: 20221102
